FAERS Safety Report 5828003-0 (Version None)
Quarter: 2008Q3

REPORT INFORMATION
  Report Type: 
  Country: None (occurrence: None)
  Receive Date: 20080728
  Receipt Date: 20080716
  Transmission Date: 20090109
  Serious: Yes (Hospitalization)
  Sender: FDA-Public Use
  Company Number: FABR-1000314

PATIENT
  Age: 58 Year
  Sex: Male
  Weight: 68 kg

DRUGS (2)
  1. FABRAZYME [Suspect]
     Indication: FABRY'S DISEASE
     Dosage: 68 MG, Q2W, INTRAVENOUS
     Route: 042
     Dates: start: 20060322
  2. COUMADIN [Concomitant]

REACTIONS (8)
  - ATRIAL FIBRILLATION [None]
  - ATRIAL FLUTTER [None]
  - BRADYCARDIA [None]
  - CHILLS [None]
  - COLD SWEAT [None]
  - INFUSION RELATED REACTION [None]
  - TRANSIENT ISCHAEMIC ATTACK [None]
  - TREMOR [None]
